FAERS Safety Report 4310634-0 (Version None)
Quarter: 2004Q1

REPORT INFORMATION
  Report Type: 
  Country: None (occurrence: None)
  Receive Date: 20040301
  Receipt Date: 20031027
  Transmission Date: 20041129
  Serious: No
  Sender: FDA-Public Use
  Company Number: WAES 0310USA02969

PATIENT
  Age: 52 Year
  Sex: Female

DRUGS (1)
  1. ZETIA [Suspect]
     Indication: DYSLIPIDAEMIA
     Dosage: PO
     Route: 048
     Dates: start: 20031013

REACTIONS (1)
  - HYPOAESTHESIA [None]
